FAERS Safety Report 20584827 (Version 1)
Quarter: 2022Q1

REPORT INFORMATION
  Report Type: Report from Study
  Country: BD (occurrence: BD)
  Receive Date: 20220311
  Receipt Date: 20220311
  Transmission Date: 20220424
  Serious: Yes (Death, Hospitalization)
  Sender: FDA-Public Use
  Company Number: BD-NOVARTISPH-NVSC2022BD047323

PATIENT
  Age: 75 Year
  Sex: Male
  Weight: 88 kg

DRUGS (1)
  1. ZOMETA [Suspect]
     Active Substance: ZOLEDRONIC ACID
     Indication: Plasma cell myeloma
     Dosage: 4 MG, QMO
     Route: 042
     Dates: start: 202104, end: 202111

REACTIONS (2)
  - Cerebrovascular accident [Fatal]
  - Epistaxis [Recovered/Resolved]

NARRATIVE: CASE EVENT DATE: 20220204
